FAERS Safety Report 7145692-1 (Version None)
Quarter: 2010Q4

REPORT INFORMATION
  Report Type: 
  Country: None (occurrence: None)
  Receive Date: 20101208
  Receipt Date: 20101111
  Transmission Date: 20110411
  Serious: No
  Sender: FDA-Public Use
  Company Number: US-ABBOTT-10P-163-0685681-00

PATIENT
  Sex: Male

DRUGS (1)
  1. ERYTHROMYCIN ESTOLATE [Suspect]
     Indication: SINUSITIS
     Dates: start: 20101110, end: 20101110

REACTIONS (2)
  - DIARRHOEA [None]
  - WRONG DRUG ADMINISTERED [None]
